FAERS Safety Report 5206912-3 (Version None)
Quarter: 2007Q1

REPORT INFORMATION
  Report Type: 
  Country: None (occurrence: None)
  Receive Date: 20070105
  Receipt Date: 20070105
  Transmission Date: 20070707
  Serious: No
  Sender: FDA-Public Use
  Company Number: None

PATIENT
  Age: 26 Year
  Sex: Male
  Weight: 84 kg

DRUGS (9)
  1. CLOFARABINE [Suspect]
     Indication: ACUTE MYELOID LEUKAEMIA
     Dosage: 80MG IV DAILY X 5D
     Route: 042
     Dates: start: 20060825, end: 20060829
  2. CYTARABINE [Concomitant]
  3. PHENYTOIN SODIUM CAP [Concomitant]
  4. CALCIUM [Concomitant]
  5. ALLOPURINOL SODIUM [Concomitant]
  6. FEXOFENADINE [Concomitant]
  7. CEFEPIME [Concomitant]
  8. VORICONAZOLE [Concomitant]
  9. DEXAMETHASONE TAB [Concomitant]

REACTIONS (7)
  - CAPILLARY LEAK SYNDROME [None]
  - DYSPNOEA [None]
  - LUNG DISORDER [None]
  - NEUTROPENIA [None]
  - OEDEMA [None]
  - PYREXIA [None]
  - SYSTEMIC INFLAMMATORY RESPONSE SYNDROME [None]
